FAERS Safety Report 17989548 (Version 1)
Quarter: 2020Q3

REPORT INFORMATION
  Report Type: Spontaneous
  Country: US (occurrence: US)
  Receive Date: 20200707
  Receipt Date: 20200707
  Transmission Date: 20201103
  Serious: Yes (Hospitalization)
  Sender: FDA-Public Use
  Company Number: None

PATIENT
  Age: 36 Year
  Sex: Male
  Weight: 86.5 kg

DRUGS (1)
  1. CEFEPIME [Suspect]
     Active Substance: CEFEPIME HYDROCHLORIDE
     Indication: OSTEOMYELITIS
     Dosage: ?          OTHER FREQUENCY:Q8 HOURS;?
     Route: 042
     Dates: start: 20200514, end: 20200601

REACTIONS (10)
  - Pyrexia [None]
  - Headache [None]
  - Nausea [None]
  - Vomiting [None]
  - Chills [None]
  - Bone marrow disorder [None]
  - Leukopenia [None]
  - Neutropenia [None]
  - Pain [None]
  - Rash [None]

NARRATIVE: CASE EVENT DATE: 20200606
